FAERS Safety Report 9659576 (Version 3)
Quarter: 2013Q4

REPORT INFORMATION
  Report Type: Spontaneous
  Country: JP (occurrence: JP)
  Receive Date: 20131031
  Receipt Date: 20131202
  Transmission Date: 20140711
  Serious: Yes (Hospitalization)
  Sender: FDA-Public Use
  Company Number: JP-ASTRAZENECA-2013SE79758

PATIENT
  Age: 26408 Day
  Sex: Male

DRUGS (5)
  1. MEROPEN [Suspect]
     Indication: PNEUMONIA
     Dates: start: 20131010, end: 20131016
  2. RECOMODULIN [Concomitant]
     Dates: start: 20131010, end: 20131016
  3. NITRODERM TTS [Concomitant]
  4. SOLITA-T NO.3 [Concomitant]
     Indication: FLUID REPLACEMENT
     Dates: start: 20131010
  5. AMIPAREN [Concomitant]
     Indication: FLUID REPLACEMENT
     Dates: start: 20131010

REACTIONS (1)
  - Acute respiratory distress syndrome [Recovering/Resolving]
